FAERS Safety Report 5603311-7 (Version None)
Quarter: 2008Q1

REPORT INFORMATION
  Report Type: 
  Country: None (occurrence: None)
  Receive Date: 20080123
  Receipt Date: 20080107
  Transmission Date: 20080703
  Serious: Yes (Life-Threatening, Other)
  Sender: FDA-Public Use
  Company Number: 2008S1000415

PATIENT
  Age: 83 Year
  Sex: Male
  Weight: 62 kg

DRUGS (5)
  1. TIZANIDINE HCL [Suspect]
     Indication: MUSCLE SPASMS
     Dosage: 4 MG; ; ORAL, 8 MG; ; ORAL
     Route: 048
  2. ASPIRIN [Concomitant]
  3. CITALOPRAM HYDROBROMIDE [Concomitant]
  4. DIPYRIDAMOLE [Concomitant]
  5. RAMIPRIL [Concomitant]

REACTIONS (2)
  - HYPOTENSION [None]
  - HYPOXIA [None]
